FAERS Safety Report 5132543-X (Version None)
Quarter: 2006Q4

REPORT INFORMATION
  Report Type: 
  Country: None (occurrence: None)
  Receive Date: 20061023
  Receipt Date: 20060830
  Transmission Date: 20070319
  Serious: Yes (Hospitalization)
  Sender: FDA-Public Use
  Company Number: FR-ROCHE-461827

PATIENT
  Age: 39 Year
  Sex: Female
  Weight: 104 kg

DRUGS (6)
  1. LARIAM [Suspect]
     Indication: DRUG USE FOR UNKNOWN INDICATION
     Dosage: FIRST TABLET ON 17 JUL 2006, SECOND TABLET ON 24 JUL 2006.
     Route: 048
     Dates: start: 20060717, end: 20060724
  2. CIPROFLOXACIN HCL [Suspect]
     Route: 048
     Dates: start: 20060721, end: 20060804
  3. FLAGYL [Suspect]
     Route: 048
     Dates: start: 20060721, end: 20060804
  4. ACETAMINOPHEN [Concomitant]
     Dates: start: 20060721
  5. POLYGYNAX [Concomitant]
     Dates: start: 20060726, end: 20060804
  6. SOLUBACTER [Concomitant]
     Dates: start: 20060726

REACTIONS (10)
  - ABDOMINAL PAIN [None]
  - CONSTIPATION [None]
  - ECCHYMOSIS [None]
  - HEADACHE [None]
  - PRURIGO [None]
  - RASH ERYTHEMATOUS [None]
  - RASH PAPULAR [None]
  - RENAL FAILURE ACUTE [None]
  - URINARY TRACT INFECTION [None]
  - VERTIGO [None]
